FAERS Safety Report 24147897 (Version 1)
Quarter: 2024Q3

REPORT INFORMATION
  Report Type: Report from Study
  Country: MX (occurrence: MX)
  Receive Date: 20240729
  Receipt Date: 20240729
  Transmission Date: 20241016
  Serious: Yes (Other)
  Sender: SANDOZ
  Company Number: MX-SANDOZ-SDZ2024MX068509

PATIENT
  Sex: Male
  Weight: 60 kg

DRUGS (1)
  1. OMNITROPE [Suspect]
     Active Substance: SOMATROPIN
     Indication: Short stature
     Dosage: 3.8 MG, QD
     Route: 058
     Dates: start: 202210

REACTIONS (2)
  - Growth retardation [Unknown]
  - Intentional device use issue [Unknown]
